FAERS Safety Report 12926247 (Version 5)
Quarter: 2017Q1

REPORT INFORMATION
  Report Type: Report from Study
  Country: CA (occurrence: CA)
  Receive Date: 20161109
  Receipt Date: 20170310
  Transmission Date: 20170428
  Serious: Yes (Hospitalization, Other)
  Sender: FDA-Public Use
  Company Number: CA-TAKEDA-2016TUS019352

PATIENT
  Age: 23 Year
  Sex: Male

DRUGS (5)
  1. ALLOPURINOL. [Concomitant]
     Active Substance: ALLOPURINOL
     Indication: RENAL DISORDER
     Dosage: UNK
  2. TESTOSTERONE. [Concomitant]
     Active Substance: TESTOSTERONE
     Dosage: UNK, 2/WEEK
  3. CORVASAL [Concomitant]
     Active Substance: LINSIDOMINE
     Indication: BLOOD PRESSURE ABNORMAL
     Dosage: UNK
  4. CORVASAL [Concomitant]
     Active Substance: LINSIDOMINE
     Indication: RENAL DISORDER
  5. VEDOLIZUMAB [Suspect]
     Active Substance: VEDOLIZUMAB
     Indication: CROHN^S DISEASE
     Dosage: 300 MG, UNK
     Route: 042
     Dates: start: 20161018, end: 20161130

REACTIONS (6)
  - Pyrexia [Unknown]
  - Nausea [Unknown]
  - Anal abscess [Recovered/Resolved]
  - Dermatitis [Unknown]
  - Sepsis [Unknown]
  - Crohn^s disease [Unknown]

NARRATIVE: CASE EVENT DATE: 20161022
